FAERS Safety Report 4310962-9 (Version None)
Quarter: 2004Q1

REPORT INFORMATION
  Report Type: 
  Country: None (occurrence: None)
  Receive Date: 20040304
  Receipt Date: 20040226
  Transmission Date: 20041129
  Serious: Yes (Other)
  Sender: FDA-Public Use
  Company Number: 200411549US

PATIENT
  Age: 44 Year
  Sex: Female

DRUGS (1)
  1. DDAVP [Suspect]
     Route: 045
     Dates: start: 20040106, end: 20040106

REACTIONS (10)
  - ANGIONEUROTIC OEDEMA [None]
  - ANURIA [None]
  - CHEST PAIN [None]
  - CHILLS [None]
  - HEADACHE [None]
  - MEDICATION ERROR [None]
  - PHARYNGOLARYNGEAL PAIN [None]
  - PYREXIA [None]
  - SELF-MEDICATION [None]
  - SWELLING [None]
